FAERS Safety Report 4520230-8 (Version None)
Quarter: 2004Q4

REPORT INFORMATION
  Report Type: 
  Country: None (occurrence: None)
  Receive Date: 20041022
  Receipt Date: 20040716
  Transmission Date: 20050328
  Serious: No
  Sender: FDA-Public Use
  Company Number: 2004219984US

PATIENT
  Age: 80 Year
  Sex: Female
  Weight: 57.1 kg

DRUGS (8)
  1. INSPRA [Suspect]
     Indication: HYPERTENSION
     Dosage: 25 MG,
     Dates: start: 20040609
  2. ZETIA [Concomitant]
  3. FOLTX [Concomitant]
  4. CHLORTALIDONE (CHLORTALIDONE) [Concomitant]
  5. ASPIRIN [Concomitant]
  6. AMARYL [Concomitant]
  7. ATENOLOL [Concomitant]
  8. NORVASC [Concomitant]

REACTIONS (1)
  - ANAEMIA [None]
